FAERS Safety Report 24121331 (Version 11)
Quarter: 2025Q3

REPORT INFORMATION
  Report Type: Spontaneous
  Country: BR (occurrence: BR)
  Receive Date: 20240722
  Receipt Date: 20250803
  Transmission Date: 20251020
  Serious: Yes (Life-Threatening, Other)
  Sender: ALEXION PHARMACEUTICALS
  Company Number: 2024A139182

PATIENT
  Age: 46 Year
  Sex: Male
  Weight: 80 kg

DRUGS (38)
  1. DAPAGLIFLOZIN [Suspect]
     Active Substance: DAPAGLIFLOZIN
     Dosage: AFTER LUNCH
     Dates: start: 20240608
  2. DAPAGLIFLOZIN [Suspect]
     Active Substance: DAPAGLIFLOZIN
     Dosage: ONCE AFTER LUNCH
  3. DAPAGLIFLOZIN [Suspect]
     Active Substance: DAPAGLIFLOZIN
     Dosage: 1 TIME AT LUNCH
     Dates: start: 20231113
  4. DAPAGLIFLOZIN [Suspect]
     Active Substance: DAPAGLIFLOZIN
     Dosage: 10 MILLIGRAM, QD
     Dates: start: 20240607
  5. ROSUVASTATIN CALCIUM [Suspect]
     Active Substance: ROSUVASTATIN CALCIUM
  6. DAPAGLIFLOZIN [Suspect]
     Active Substance: DAPAGLIFLOZIN
     Indication: Diabetes mellitus
     Dosage: 10 MILLIGRAM, QD, A TABLET AFTER LUNCH
     Dates: start: 20240608, end: 20241105
  7. DAPAGLIFLOZIN [Suspect]
     Active Substance: DAPAGLIFLOZIN
  8. DAPAGLIFLOZIN [Suspect]
     Active Substance: DAPAGLIFLOZIN
     Dosage: 10 MILLIGRAM, QD
     Dates: start: 20240607
  9. DAPAGLIFLOZIN [Suspect]
     Active Substance: DAPAGLIFLOZIN
     Dosage: 10 MILLIGRAM, QD
     Dates: start: 202311, end: 202311
  10. CRESTOR [4]
     Active Substance: ROSUVASTATIN CALCIUM
  11. CRESTOR [4]
     Active Substance: ROSUVASTATIN CALCIUM
  12. JANUMET XR [Concomitant]
     Active Substance: METFORMIN HYDROCHLORIDE\SITAGLIPTIN PHOSPHATE
     Indication: Diabetes mellitus
     Dosage: UNK, BID
     Dates: start: 20240608, end: 202407
  13. GLICLAZIDE [Concomitant]
     Active Substance: GLICLAZIDE
     Indication: Diabetes mellitus
     Dosage: 2 TABLETS
     Dates: start: 20240608
  14. ATORVASTATIN CALCIUM [Concomitant]
     Active Substance: ATORVASTATIN CALCIUM
     Indication: Diabetes mellitus
  15. ATORVASTATIN CALCIUM [Concomitant]
     Active Substance: ATORVASTATIN CALCIUM
  16. METFORMIN HYDROCHLORIDE [Concomitant]
     Active Substance: METFORMIN HYDROCHLORIDE
     Indication: Diabetes mellitus
  17. METFORMIN HYDROCHLORIDE [Concomitant]
     Active Substance: METFORMIN HYDROCHLORIDE
     Dates: start: 20240725, end: 20240825
  18. METFORMIN HYDROCHLORIDE [Concomitant]
     Active Substance: METFORMIN HYDROCHLORIDE
     Route: 065
  19. METFORMIN [Concomitant]
     Active Substance: METFORMIN HYDROCHLORIDE
     Indication: Diabetes mellitus
  20. JANUMET [Concomitant]
     Active Substance: METFORMIN HYDROCHLORIDE\SITAGLIPTIN PHOSPHATE
  21. Diamicron [Concomitant]
     Indication: Type 2 diabetes mellitus
  22. Diamicron [Concomitant]
     Dosage: 60 MILLIGRAM, QD
  23. Diamicron [Concomitant]
     Dosage: 30 MILLIGRAM, BID
     Dates: start: 20180217
  24. RYBELSUS [Concomitant]
     Active Substance: SEMAGLUTIDE
  25. GLIMEPIRIDE\METFORMIN [Concomitant]
     Active Substance: GLIMEPIRIDE\METFORMIN
  26. PIOGLITAZONE HYDROCHLORIDE [Concomitant]
     Active Substance: PIOGLITAZONE HYDROCHLORIDE
     Dates: start: 20240725, end: 20240824
  27. GLYBURIDE [Concomitant]
     Active Substance: GLYBURIDE
  28. GLYBURIDE [Concomitant]
     Active Substance: GLYBURIDE
  29. VILDAGLIPTIN [Concomitant]
     Active Substance: VILDAGLIPTIN
  30. EZETIMIBE [Suspect]
     Active Substance: EZETIMIBE
  31. GLYBURIDE [Concomitant]
     Active Substance: GLYBURIDE
  32. VILDAGLIPTIN [Concomitant]
     Active Substance: VILDAGLIPTIN
  33. JANUVIA [Concomitant]
     Active Substance: SITAGLIPTIN PHOSPHATE
  34. Milgamma [Concomitant]
     Dosage: 150 MILLIGRAM, QD
  35. CIPROFIBRATE [Concomitant]
     Active Substance: CIPROFIBRATE
  36. SIMVASTATIN [Concomitant]
     Active Substance: SIMVASTATIN
  37. SIMVASTATIN [Concomitant]
     Active Substance: SIMVASTATIN
  38. PREGABALIN [Concomitant]
     Active Substance: PREGABALIN

REACTIONS (34)
  - Diabetes mellitus [Recovered/Resolved]
  - Polyneuropathy [Unknown]
  - Erectile dysfunction [Not Recovered/Not Resolved]
  - Ejaculation disorder [Not Recovered/Not Resolved]
  - Semen discolouration [Not Recovered/Not Resolved]
  - Product use issue [Unknown]
  - Urine abnormality [Unknown]
  - Chromaturia [Recovered/Resolved]
  - Drug effect less than expected [Unknown]
  - Weight decreased [Unknown]
  - Blood creatine increased [Unknown]
  - Asthenia [Unknown]
  - Dizziness [Unknown]
  - Breath odour [Unknown]
  - Intentional product misuse [Unknown]
  - Nervousness [Unknown]
  - Insomnia [Unknown]
  - Hernia [Unknown]
  - Chest discomfort [Unknown]
  - Urinary tract discomfort [Unknown]
  - Blood pressure fluctuation [Unknown]
  - Weight increased [Unknown]
  - Drug ineffective [Unknown]
  - Blood cholesterol decreased [Not Recovered/Not Resolved]
  - Hepatic steatosis [Recovering/Resolving]
  - Blood glucose increased [Unknown]
  - Blood triglycerides decreased [Unknown]
  - Genital disorder [Unknown]
  - Urine abnormality [Unknown]
  - Product selection error [Unknown]
  - Myalgia [Unknown]
  - Decreased appetite [Unknown]
  - Fatigue [Unknown]
  - Product use in unapproved indication [Not Recovered/Not Resolved]

NARRATIVE: CASE EVENT DATE: 20231101
